FAERS Safety Report 18326012 (Version 4)
Quarter: 2020Q4

REPORT INFORMATION
  Report Type: Spontaneous
  Country: US (occurrence: US)
  Receive Date: 20200929
  Receipt Date: 20201201
  Transmission Date: 20210113
  Serious: Yes (Other)
  Sender: FDA-Public Use
  Company Number: US-SA-2020SA261234

PATIENT

DRUGS (1)
  1. TOUJEO [Suspect]
     Active Substance: INSULIN GLARGINE
     Indication: TYPE 2 DIABETES MELLITUS
     Dosage: 12 TO 20 UNITS ONCE DAILY
     Route: 065
     Dates: start: 2018

REACTIONS (3)
  - Product storage error [Recovering/Resolving]
  - Diabetes mellitus inadequate control [Recovering/Resolving]
  - Drug ineffective [Recovering/Resolving]
